FAERS Safety Report 9748213 (Version 2)
Quarter: 2014Q2

REPORT INFORMATION
  Report Type: Spontaneous
  Country: US (occurrence: US)
  Receive Date: 20131212
  Receipt Date: 20140421
  Transmission Date: 20141212
  Serious: No
  Sender: FDA-Public Use
  Company Number: US-PFIZER INC-2013353857

PATIENT
  Age: 66 Year
  Sex: Female

DRUGS (10)
  1. CELEBREX [Suspect]
     Dosage: UNK
  2. IBUPROFEN [Suspect]
     Dosage: UNK
  3. CLINDAMYCIN HCL [Suspect]
     Dosage: UNK
  4. LISINOPRIL [Suspect]
     Dosage: UNK
  5. PHENOXYMETHYLPENICILLIN POTASSIUM [Suspect]
     Dosage: UNK
  6. ENTEX [Suspect]
     Dosage: UNK
  7. GRIS-PEG [Suspect]
     Dosage: UNK
  8. PRILOSEC [Suspect]
     Dosage: UNK
  9. NYSTOP [Suspect]
     Dosage: UNK
  10. BACITRACIN-POLYMYXIN B [Suspect]
     Dosage: UNK

REACTIONS (1)
  - Drug hypersensitivity [Unknown]
